FAERS Safety Report 17258832 (Version 1)
Quarter: 2020Q1

REPORT INFORMATION
  Report Type: Spontaneous
  Country: KZ (occurrence: KZ)
  Receive Date: 20200110
  Receipt Date: 20200110
  Transmission Date: 20200409
  Serious: Yes (Life-Threatening, Hospitalization, Other)
  Sender: FDA-Public Use
  Company Number: KZ-ABBVIE-20K-230-3227424-00

PATIENT
  Age: 2 Year
  Sex: Female

DRUGS (2)
  1. MEPIVASTESIN [Suspect]
     Active Substance: MEPIVACAINE HYDROCHLORIDE
     Indication: LOCAL ANAESTHESIA
     Route: 065
     Dates: start: 20191226
  2. SEVOFRANE [Suspect]
     Active Substance: SEVOFLURANE
     Indication: GENERAL ANAESTHESIA
     Route: 055
     Dates: start: 20191226

REACTIONS (4)
  - Brain stem syndrome [Not Recovered/Not Resolved]
  - Coma [Not Recovered/Not Resolved]
  - Anaphylactic shock [Not Recovered/Not Resolved]
  - Anaesthetic complication [Unknown]

NARRATIVE: CASE EVENT DATE: 20191226
